FAERS Safety Report 13457140 (Version 4)
Quarter: 2017Q2

REPORT INFORMATION
  Report Type: Spontaneous
  Country: PL (occurrence: PL)
  Receive Date: 20170419
  Receipt Date: 20170620
  Transmission Date: 20170830
  Serious: Yes (Other)
  Sender: FDA-Public Use
  Company Number: PL-MYLANLABS-2017M1024360

PATIENT

DRUGS (21)
  1. QUETIAPINE. [Suspect]
     Active Substance: QUETIAPINE
     Indication: BIPOLAR DISORDER
  2. TETRABENAZINE. [Suspect]
     Active Substance: TETRABENAZINE
     Dosage: 75 MG, QD
  3. BACLOFEN. [Concomitant]
     Active Substance: BACLOFEN
     Indication: PRODUCT USED FOR UNKNOWN INDICATION
     Dosage: UNK
  4. CLOZAPINE. [Suspect]
     Active Substance: CLOZAPINE
     Indication: SCHIZOPHRENIA
  5. TETRABENAZINE. [Suspect]
     Active Substance: TETRABENAZINE
     Dosage: 87.5 MG, QD
  6. TETRABENAZINE. [Suspect]
     Active Substance: TETRABENAZINE
     Dosage: 37.5 MG, QD
  7. VITAMIN B6 [Concomitant]
     Active Substance: PYRIDOXINE HYDROCHLORIDE
     Indication: PRODUCT USED FOR UNKNOWN INDICATION
     Dosage: UNK
  8. VITAMIN E [Concomitant]
     Active Substance: .ALPHA.-TOCOPHEROL
     Indication: PRODUCT USED FOR UNKNOWN INDICATION
     Dosage: UNK
  9. QUETIAPINE. [Suspect]
     Active Substance: QUETIAPINE
     Indication: SCHIZOPHRENIA
     Dosage: 100 MG, QD
  10. TETRABENAZINE. [Suspect]
     Active Substance: TETRABENAZINE
     Dosage: 62.5 MG, QD
  11. TETRABENAZINE. [Suspect]
     Active Substance: TETRABENAZINE
     Dosage: 75 MG, QD
  12. RISPERIDONE. [Suspect]
     Active Substance: RISPERIDONE
     Indication: SCHIZOPHRENIA
     Dosage: UNK
  13. TETRABENAZINE. [Suspect]
     Active Substance: TETRABENAZINE
     Dosage: 62.5 MG, QD
  14. TETRABENAZINE. [Suspect]
     Active Substance: TETRABENAZINE
     Dosage: 75 MG, QD
  15. TETRABENAZINE. [Suspect]
     Active Substance: TETRABENAZINE
     Dosage: 12.5 MG, QD
  16. CLOZAPINE. [Suspect]
     Active Substance: CLOZAPINE
     Indication: BIPOLAR DISORDER
     Dosage: UNK
  17. OLANZAPINE. [Suspect]
     Active Substance: OLANZAPINE
     Indication: SCHIZOPHRENIA
     Dosage: UNK
  18. TETRABENAZINE. [Suspect]
     Active Substance: TETRABENAZINE
     Indication: TARDIVE DYSKINESIA
     Dosage: 12.5 MG, QD
  19. LORAZEPAM. [Suspect]
     Active Substance: LORAZEPAM
     Indication: SCHIZOPHRENIA
     Dosage: 5 MG, QD
  20. TETRABENAZINE. [Suspect]
     Active Substance: TETRABENAZINE
     Dosage: 75 MG, QD
  21. TETRABENAZINE. [Suspect]
     Active Substance: TETRABENAZINE
     Dosage: 62.5 MG, QD

REACTIONS (12)
  - Facial asymmetry [Recovering/Resolving]
  - Decreased activity [Unknown]
  - Tardive dyskinesia [Recovering/Resolving]
  - Deformity [Recovering/Resolving]
  - Extrapyramidal disorder [Unknown]
  - Mental impairment [Recovering/Resolving]
  - Product use in unapproved indication [Unknown]
  - Depressed mood [Unknown]
  - Somnolence [Unknown]
  - Apathy [Unknown]
  - Drug ineffective [Unknown]
  - Body mass index increased [Not Recovered/Not Resolved]
